FAERS Safety Report 9682775 (Version 1)
Quarter: 2013Q4

REPORT INFORMATION
  Report Type: Spontaneous
  Country: GB (occurrence: GB)
  Receive Date: 20131112
  Receipt Date: 20131112
  Transmission Date: 20140711
  Serious: Yes (Disabling, Other)
  Sender: FDA-Public Use
  Company Number: GB-009507513-1311GBR003690

PATIENT
  Age: 54 Year
  Sex: Female

DRUGS (7)
  1. OMEPRAZOLE [Concomitant]
     Dosage: 30 MG, UNK
     Route: 048
  2. SERETIDE [Concomitant]
  3. VENTOLIN (ALBUTEROL SULFATE) [Concomitant]
  4. ALENDRONATE SODIUM [Suspect]
     Indication: OSTEOPENIA
     Dosage: 70 MG, QW
     Route: 048
     Dates: start: 20130110, end: 20130124
  5. AMITRIPTYLINE HYDROCHLORIDE [Concomitant]
     Dosage: 30 MG, UNK
  6. CALCICHEW D3 [Concomitant]
     Indication: OSTEOPENIA
     Dosage: 1 DF, BID
     Dates: start: 20130110
  7. CITALOPRAM [Concomitant]
     Indication: DEPRESSION
     Dosage: 40 MG, UNK
     Dates: start: 200806

REACTIONS (5)
  - Depression [Unknown]
  - Terminal insomnia [Recovered/Resolved]
  - Nightmare [Recovered/Resolved]
  - Sleep disorder [Recovered/Resolved]
  - Pruritus [Unknown]
